FAERS Safety Report 5054246-2 (Version None)
Quarter: 2006Q3

REPORT INFORMATION
  Report Type: 
  Country: None (occurrence: None)
  Receive Date: 20060713
  Receipt Date: 20060627
  Transmission Date: 20061208
  Serious: Yes (Other)
  Sender: FDA-Public Use
  Company Number: US184619

PATIENT
  Sex: Male

DRUGS (7)
  1. ENBREL [Suspect]
     Indication: PSORIATIC ARTHROPATHY
     Dosage: 25 MG, 2 IN 1 WEEKS
     Dates: start: 20010101
  2. METHOTREXATE [Concomitant]
  3. INDOMETHACIN [Concomitant]
  4. ROFECOXIB [Concomitant]
  5. TIMOLOL MALEATE [Concomitant]
  6. DORZOLAMIDE [Concomitant]
  7. PREDNISOLONE ACETATE [Concomitant]

REACTIONS (6)
  - ENDOPHTHALMITIS [None]
  - IRIDOCYCLITIS [None]
  - MYCOBACTERIUM ABSCESSUS INFECTION [None]
  - MYCOBACTERIUM CHELONEI INFECTION [None]
  - POSTOPERATIVE INFECTION [None]
  - UVEITIS [None]
